FAERS Safety Report 5001847-3 (Version None)
Quarter: 2006Q2

REPORT INFORMATION
  Report Type: 
  Country: None (occurrence: None)
  Receive Date: 20060515
  Receipt Date: 20060426
  Transmission Date: 20061013
  Serious: Yes (Hospitalization)
  Sender: FDA-Public Use
  Company Number: JP-JPN-A200601383

PATIENT
  Age: 69 Year
  Sex: Male
  Weight: 56 kg

DRUGS (6)
  1. VALTREX [Suspect]
     Indication: HERPES ZOSTER
     Dosage: 1000MG THREE TIMES PER DAY
     Route: 048
     Dates: start: 20060420, end: 20060423
  2. IBUPROFEN [Suspect]
     Indication: NEURALGIA
     Dosage: 600MG PER DAY
     Route: 048
     Dates: start: 20060422, end: 20060423
  3. UNKNOWN MEDICATION [Suspect]
     Route: 048
     Dates: start: 20060420, end: 20060421
  4. CIBENOL [Suspect]
     Indication: ATRIAL FIBRILLATION
     Route: 048
  5. AMINOPYRINE [Concomitant]
     Route: 065
  6. HYDROCORTONE [Concomitant]

REACTIONS (7)
  - CONFUSIONAL STATE [None]
  - DELUSION [None]
  - ENCEPHALITIS [None]
  - ENCEPHALOPATHY [None]
  - HALLUCINATION [None]
  - OVERDOSE [None]
  - PSYCHIATRIC SYMPTOM [None]
